FAERS Safety Report 25733843 (Version 1)
Quarter: 2025Q3

REPORT INFORMATION
  Report Type: Spontaneous
  Country: CN (occurrence: CN)
  Receive Date: 20250828
  Receipt Date: 20250828
  Transmission Date: 20251020
  Serious: Yes (Hospitalization)
  Sender: BAXTER
  Company Number: None

PATIENT
  Age: 65 Year
  Sex: Female
  Weight: 60 kg

DRUGS (4)
  1. IFOSFAMIDE [Suspect]
     Active Substance: IFOSFAMIDE
     Indication: Soft tissue sarcoma
     Dosage: 3.900000 G, QD, IVGTT D1 (WITH 0.9% NS 500ML)
     Route: 041
     Dates: start: 20250702, end: 20250702
  2. SODIUM CHLORIDE [Suspect]
     Active Substance: SODIUM CHLORIDE
     Dosage: 500 ML, QD, IVGTT D1 (0.9% NS WITH IFOSFAMIDE INJECTION)
     Route: 041
     Dates: start: 20250702, end: 20250702
  3. DEXTROSE [Suspect]
     Active Substance: DEXTROSE MONOHYDRATE
     Dosage: 150 ML, QD, IVGTT D1 (5% GS WITH DOXORUBICIN LIPOSOME INJECTION)
     Route: 041
     Dates: start: 20250702, end: 20250702
  4. DOXORUBICIN HYDROCHLORIDE [Suspect]
     Active Substance: DOXORUBICIN HYDROCHLORIDE
     Indication: Soft tissue sarcoma
     Dosage: 55.00000 MG, QD, IVGTT D1 (WITH 5% GS150ML)
     Route: 041
     Dates: start: 20250702, end: 20250702

REACTIONS (2)
  - White blood cell count decreased [Recovering/Resolving]
  - Neutrophil count decreased [Recovering/Resolving]

NARRATIVE: CASE EVENT DATE: 20250712
